FAERS Safety Report 5894910-6 (Version None)
Quarter: 2008Q3

REPORT INFORMATION
  Report Type: 
  Country: None (occurrence: None)
  Receive Date: 20080924
  Receipt Date: 20080916
  Transmission Date: 20090109
  Serious: Yes (Hospitalization, Other)
  Sender: FDA-Public Use
  Company Number: PHHY2008DE19368

PATIENT
  Sex: Male
  Weight: 80 kg

DRUGS (2)
  1. LEPONEX [Suspect]
     Indication: PSYCHOTIC DISORDER
     Dosage: 100 MG/DAY
     Route: 048
     Dates: start: 19780101
  2. LEPONEX [Suspect]
     Dosage: 200 MG/DAY
     Route: 048
     Dates: start: 20080601

REACTIONS (8)
  - COMA [None]
  - FEMORAL NECK FRACTURE [None]
  - LEUKOCYTOSIS [None]
  - LYMPHOCYTIC LEUKAEMIA [None]
  - PNEUMONIA [None]
  - PSYCHOTIC DISORDER [None]
  - SEPSIS [None]
  - STAPHYLOCOCCAL INFECTION [None]
